FAERS Safety Report 11273234 (Version 1)
Quarter: 2015Q3

REPORT INFORMATION
  Report Type: Spontaneous
  Country: US (occurrence: None)
  Receive Date: 20150714
  Receipt Date: 20150714
  Transmission Date: 20151125
  Serious: Yes (Hospitalization)
  Sender: FDA-Public Use
  Company Number: None

PATIENT
  Age: 63 Year
  Sex: Male
  Weight: 78.93 kg

DRUGS (1)
  1. DEPO TESTOSTERONE [Suspect]
     Active Substance: TESTOSTERONE
     Indication: HYPOGONADISM
     Dosage: 200 MG TESTOSTERONE 30 DAYS INTRAMUSCULAR
     Route: 030
     Dates: start: 20150616

REACTIONS (6)
  - Bursal fluid accumulation [None]
  - Oedema [None]
  - Arthralgia [None]
  - Pain in extremity [None]
  - Joint swelling [None]
  - Erythema [None]

NARRATIVE: CASE EVENT DATE: 20150616
